FAERS Safety Report 16106759 (Version 1)
Quarter: 2019Q1

REPORT INFORMATION
  Report Type: Spontaneous
  Country: GB (occurrence: GB)
  Receive Date: 20190322
  Receipt Date: 20190322
  Transmission Date: 20190418
  Serious: Yes (Hospitalization)
  Sender: FDA-Public Use
  Company Number: GB-PFIZER INC-2019119320

PATIENT
  Age: 33 Year
  Sex: Female
  Weight: 57 kg

DRUGS (3)
  1. FONDAPARINUX [Concomitant]
     Active Substance: FONDAPARINUX
     Dosage: UNK
  2. PENTASA [Concomitant]
     Active Substance: MESALAMINE
     Dosage: UNK
  3. TOFACITINIB CITRATE [Suspect]
     Active Substance: TOFACITINIB CITRATE
     Indication: COLITIS ULCERATIVE
     Dosage: 10 MG, UNK
     Route: 048
     Dates: start: 20181206, end: 20190127

REACTIONS (5)
  - Pulmonary embolism [Not Recovered/Not Resolved]
  - Malaise [Unknown]
  - Viral upper respiratory tract infection [Not Recovered/Not Resolved]
  - Dehydration [Unknown]
  - Deep vein thrombosis [Not Recovered/Not Resolved]

NARRATIVE: CASE EVENT DATE: 20181223
